FAERS Safety Report 15316216 (Version 1)
Quarter: 2018Q3

REPORT INFORMATION
  Report Type: Spontaneous
  Country: US (occurrence: US)
  Receive Date: 20180824
  Receipt Date: 20180824
  Transmission Date: 20181010
  Serious: Yes (Hospitalization)
  Sender: FDA-Public Use
  Company Number: US-IMPAX LABORATORIES, INC-2018-IPXL-02749

PATIENT
  Age: 88 Year
  Sex: Male
  Weight: 73 kg

DRUGS (4)
  1. RYTARY [Suspect]
     Active Substance: CARBIDOPA\LEVODOPA
     Indication: PARKINSON^S DISEASE
     Dosage: 23.75/95MG, ONE CAPSULE, TWICE DAILY
     Route: 048
     Dates: start: 201806, end: 201807
  2. RYTARY [Suspect]
     Active Substance: CARBIDOPA\LEVODOPA
     Dosage: 23.75/95MG, ONE CAPSULE, TWICE DAILY
     Route: 048
     Dates: start: 20180807
  3. RYTARY [Suspect]
     Active Substance: CARBIDOPA\LEVODOPA
     Dosage: 36.25/145MG, THREE CAPSULES, THREE TIMES A DAY
     Route: 048
     Dates: start: 201806, end: 201807
  4. RYTARY [Suspect]
     Active Substance: CARBIDOPA\LEVODOPA
     Dosage: 36.25/145MG, THREE CAPSULES, THREE TIMES A DAY
     Route: 048
     Dates: start: 20180807

REACTIONS (2)
  - Urosepsis [Recovered/Resolved]
  - Urinary tract infection [Recovered/Resolved]

NARRATIVE: CASE EVENT DATE: 20180714
